FAERS Safety Report 16907976 (Version 1)
Quarter: 2019Q4

REPORT INFORMATION
  Report Type: Spontaneous
  Country: GB (occurrence: GB)
  Receive Date: 20191011
  Receipt Date: 20191011
  Transmission Date: 20200122
  Serious: Yes (Other)
  Sender: FDA-Public Use
  Company Number: GB-MYLANLABS-2019M1095005

PATIENT
  Age: 72 Year
  Sex: Female
  Weight: 57 kg

DRUGS (6)
  1. THYROXINE SODIUM [Concomitant]
     Active Substance: LEVOTHYROXINE SODIUM
     Dosage: UNK
  2. OPTIVE [Concomitant]
     Active Substance: CARBOXYMETHYLCELLULOSE SODIUM\GLYCERIN
     Dosage: UNK
  3. DERMOL                             /01330701/ [Concomitant]
     Dosage: UNK
  4. EPADERM [Concomitant]
     Active Substance: MINERAL OIL\PETROLATUM\WAX, EMULSIFYING
     Dosage: UNK
  5. ACICLOVIR [Suspect]
     Active Substance: ACYCLOVIR
     Dosage: 2000 MILLIGRAM, QD
     Route: 048
     Dates: start: 20190816, end: 20190816
  6. ACICLOVIR [Suspect]
     Active Substance: ACYCLOVIR
     Indication: ORAL HERPES
     Dosage: 200 MILLIGRAM

REACTIONS (3)
  - Discomfort [Unknown]
  - Lip swelling [Recovered/Resolved]
  - Somnolence [Unknown]

NARRATIVE: CASE EVENT DATE: 2019
